FAERS Safety Report 23728237 (Version 6)
Quarter: 2025Q1

REPORT INFORMATION
  Report Type: Report from Study
  Country: US (occurrence: US)
  Receive Date: 20240410
  Receipt Date: 20250207
  Transmission Date: 20250409
  Serious: Yes (Hospitalization, Other)
  Sender: pharmaAND
  Company Number: US-Pharmaand-2024000221

PATIENT
  Age: 64 Year
  Sex: Female

DRUGS (3)
  1. RUBRACA [Suspect]
     Active Substance: RUCAPARIB CAMSYLATE
     Indication: Ovarian cancer
     Dosage: RUBRACA 300MG TABLET-2 TABLETS BY MOUTH TWICE A DAY
     Route: 048
     Dates: start: 20240229
  2. RUBRACA [Suspect]
     Active Substance: RUCAPARIB CAMSYLATE
     Indication: Breast disorder
     Dosage: 500 MG TWICE DAILY
  3. RUBRACA [Suspect]
     Active Substance: RUCAPARIB CAMSYLATE
     Indication: Breast disorder

REACTIONS (25)
  - Peripheral swelling [Unknown]
  - Abdominal pain upper [Unknown]
  - Feeling hot [Unknown]
  - Intestinal obstruction [Unknown]
  - Intra-abdominal fluid collection [Unknown]
  - Vomiting [Not Recovered/Not Resolved]
  - Nausea [Not Recovered/Not Resolved]
  - Abdominal pain [Unknown]
  - Constipation [Not Recovered/Not Resolved]
  - Blood magnesium decreased [Unknown]
  - Blood potassium decreased [Unknown]
  - Fatigue [Unknown]
  - Asthenia [Unknown]
  - Eye irritation [Unknown]
  - Lacrimation increased [Unknown]
  - Pain [Unknown]
  - Neck pain [Unknown]
  - Pruritus [Unknown]
  - Sensitive skin [Unknown]
  - Chills [Unknown]
  - Product dose omission issue [Recovered/Resolved]
  - Diarrhoea [Not Recovered/Not Resolved]
  - Headache [Unknown]
  - Eye pain [Unknown]
  - Blood pressure abnormal [Unknown]

NARRATIVE: CASE EVENT DATE: 20240901
